FAERS Safety Report 8223408-5 (Version None)
Quarter: 2012Q1

REPORT INFORMATION
  Report Type: 
  Country: None (occurrence: None)
  Receive Date: 20120321
  Receipt Date: 20120315
  Transmission Date: 20120608
  Serious: Yes (Death, Hospitalization)
  Sender: FDA-Public Use
  Company Number: PL-CELGENEUS-129-CCAZA-11062314

PATIENT
  Sex: Female
  Weight: 69 kg

DRUGS (1)
  1. AZACITIDINE [Suspect]
     Dosage: 75 MILLIGRAM/SQ. METER
     Route: 058
     Dates: start: 20110527, end: 20110602

REACTIONS (2)
  - ACUTE MYELOID LEUKAEMIA [None]
  - LEFT VENTRICULAR FAILURE [None]
